FAERS Safety Report 10757391 (Version 2)
Quarter: 2015Q1

REPORT INFORMATION
  Report Type: Spontaneous
  Country: US (occurrence: None)
  Receive Date: 20150130
  Receipt Date: 20150211
  Transmission Date: 20150721
  Serious: Yes (Hospitalization)
  Sender: FDA-Public Use
  Company Number: UCM201501-000046

PATIENT
  Age: 33 Year
  Sex: Male

DRUGS (3)
  1. ISONIAZID (ISONIAZID) [Concomitant]
     Active Substance: ISONIAZID
  2. RIFAPENTINE [Suspect]
     Active Substance: RIFAPENTINE
     Indication: LATENT TUBERCULOSIS
  3. AMLODIPINE [Suspect]
     Active Substance: AMLODIPINE BESYLATE
     Indication: HYPERTENSION

REACTIONS (2)
  - Drug interaction [None]
  - Hypertensive crisis [None]
